FAERS Safety Report 5667538-0 (Version None)
Quarter: 2008Q1

REPORT INFORMATION
  Report Type: 
  Country: None (occurrence: None)
  Receive Date: 20080315
  Receipt Date: 20080125
  Transmission Date: 20080703
  Serious: No
  Sender: FDA-Public Use
  Company Number: US-ABBOTT-08P-163-0435366-00

PATIENT
  Sex: Female
  Weight: 116.22 kg

DRUGS (8)
  1. HUMIRA [Suspect]
     Indication: RHEUMATOID ARTHRITIS
     Route: 058
     Dates: start: 20080108
  2. DEPO SHOT [Concomitant]
     Indication: MENSTRUATION IRREGULAR
     Dates: start: 20071101
  3. METHOTREXATE [Concomitant]
     Indication: RHEUMATOID ARTHRITIS
     Route: 048
  4. FOLIC ACID [Concomitant]
     Indication: VITAMIN SUPPLEMENTATION
     Route: 048
  5. RISEDRONATE SODIUM [Concomitant]
     Indication: HYPERTENSION
     Route: 048
  6. PRINZIDE [Concomitant]
     Indication: HYPERTENSION
     Route: 048
  7. IRON PILLS [Concomitant]
     Indication: FULL BLOOD COUNT DECREASED
     Route: 048
  8. HYDROCORTISONE [Concomitant]
     Indication: ARTHRALGIA
     Route: 048

REACTIONS (3)
  - ABDOMINAL PAIN UPPER [None]
  - MENSTRUATION IRREGULAR [None]
  - VAGINAL HAEMORRHAGE [None]
